FAERS Safety Report 4439462-2 (Version None)
Quarter: 2004Q3

REPORT INFORMATION
  Report Type: 
  Country: None (occurrence: None)
  Receive Date: 20040728
  Receipt Date: 20040309
  Transmission Date: 20050211
  Serious: No
  Sender: FDA-Public Use
  Company Number: USA040361494

PATIENT
  Age: 5 Year
  Sex: Male
  Weight: 23 kg

DRUGS (3)
  1. ZYPREXA [Suspect]
     Indication: TIC
     Dosage: 5 MG DAY
     Dates: start: 20030601
  2. ZYPREXA [Suspect]
     Indication: TOURETTE'S DISORDER
     Dosage: 5 MG DAY
     Dates: start: 20030601
  3. STRATTERA [Suspect]
     Indication: PSYCHOMOTOR HYPERACTIVITY
     Dosage: 10 MG/1 DAY
     Dates: start: 20040309

REACTIONS (3)
  - HEAD BANGING [None]
  - SOMNOLENCE [None]
  - WEIGHT INCREASED [None]
